FAERS Safety Report 9665204 (Version 2)
Quarter: 2013Q4

REPORT INFORMATION
  Report Type: Spontaneous
  Country: IE (occurrence: IE)
  Receive Date: 20131101
  Receipt Date: 20131119
  Transmission Date: 20140711
  Serious: Yes (Hospitalization)
  Sender: FDA-Public Use
  Company Number: IE-ABBVIE-13P-229-1164851-00

PATIENT
  Age: 55 Year
  Sex: Female

DRUGS (4)
  1. EPILIM CHRONO [Suspect]
     Indication: CONVULSION
     Dosage: EXTENDED RELEASE
     Dates: end: 20131003
  2. EPILIM CHRONO [Suspect]
  3. KEPPRA [Suspect]
     Indication: CONVULSION
     Route: 048
     Dates: start: 20131001, end: 20131003
  4. METOCLOPRAMIDE [Concomitant]
     Indication: PRODUCT USED FOR UNKNOWN INDICATION
     Dates: start: 20130929, end: 20131003

REACTIONS (5)
  - Brain oedema [Recovered/Resolved]
  - Dehydration [Recovered/Resolved]
  - Sepsis [Recovered/Resolved]
  - Confusional state [Recovered/Resolved]
  - Encephalopathy [Recovered/Resolved]
